FAERS Safety Report 4604161-0 (Version None)
Quarter: 2005Q1

REPORT INFORMATION
  Report Type: 
  Country: None (occurrence: None)
  Receive Date: 20050308
  Receipt Date: 20050308
  Transmission Date: 20050727
  Serious: No
  Sender: FDA-Public Use
  Company Number: None

PATIENT
  Age: 77 Year
  Sex: Male
  Weight: 74.5 kg

DRUGS (1)
  1. THALIDOMIDE  90MG [Suspect]
     Indication: MULTIPLE MYELOMA
     Dosage: 200MG PO QHS
     Route: 048
     Dates: start: 20040701, end: 20040901

REACTIONS (1)
  - NEUROPATHY PERIPHERAL [None]
